FAERS Safety Report 5995964-9 (Version None)
Quarter: 2008Q4

REPORT INFORMATION
  Report Type: 
  Country: None (occurrence: None)
  Receive Date: 20081212
  Receipt Date: 20081007
  Transmission Date: 20090506
  Serious: No
  Sender: FDA-Public Use
  Company Number: US-ABBOTT-08P-163-0480215-00

PATIENT
  Age: 66 Year
  Sex: Female
  Weight: 54.48 kg

DRUGS (4)
  1. HUMIRA [Suspect]
     Indication: RHEUMATOID ARTHRITIS
     Dates: start: 20080917
  2. HYDROXYCHLOROQUINE SULFATE [Concomitant]
     Indication: RHEUMATOID ARTHRITIS
     Route: 048
  3. CARISTRODOL [Concomitant]
     Indication: MUSCLE RELAXANT THERAPY
     Route: 048
  4. PROPACET 100 [Concomitant]
     Indication: SLEEP DISORDER
     Route: 048

REACTIONS (2)
  - PAIN [None]
  - SWELLING [None]
